FAERS Safety Report 11195306 (Version 1)
Quarter: 2015Q2

REPORT INFORMATION
  Report Type: Report from Study
  Country: US (occurrence: None)
  Receive Date: 20150603
  Receipt Date: 20150603
  Transmission Date: 20150821
  Serious: No
  Sender: FDA-Public Use
  Company Number: 2014TASUS000629

PATIENT
  Age: 54 Year
  Sex: Male
  Weight: 81.6 kg

DRUGS (10)
  1. PERCOCET (OXYCODONE HYDROCHLORIDE, PARACETAMOL) [Concomitant]
  2. FLONASE [Concomitant]
     Active Substance: FLUTICASONE PROPIONATE
  3. HETLIOZ [Suspect]
     Active Substance: TASIMELTEON
     Indication: CIRCADIAN RHYTHM SLEEP DISORDER
     Route: 048
     Dates: start: 20141119
  4. LOVASTATIN. [Concomitant]
     Active Substance: LOVASTATIN
  5. RESTORIL [Concomitant]
     Active Substance: TEMAZEPAM
  6. PREVACID [Concomitant]
     Active Substance: LANSOPRAZOLE
  7. FLUVOXAMINE MALEATE. [Concomitant]
     Active Substance: FLUVOXAMINE MALEATE
  8. LOVAZA [Concomitant]
     Active Substance: OMEGA-3-ACID ETHYL ESTERS
  9. CLARINEX [Concomitant]
     Active Substance: DESLORATADINE
  10. MULTIVITAMINS (ASCORBIC ACID, ERGOCALCIFEROL, FOLIC ACID, NICOTINAMIDE, PANTHENOL, RETINOL, RIBOFLAVIN, THIAMINE HYDROCHLORIDE) [Concomitant]
     Active Substance: VITAMINS

REACTIONS (7)
  - Adverse drug reaction [None]
  - Headache [None]
  - Sleep disorder [None]
  - Nervousness [None]
  - Fatigue [None]
  - Constipation [None]
  - Irritability [None]

NARRATIVE: CASE EVENT DATE: 20141208
